FAERS Safety Report 8813155 (Version 1)
Quarter: 2012Q4

REPORT INFORMATION
  Report Type: 
  Country: US (occurrence: US)
  Receive Date: 20120927
  Receipt Date: 20120927
  Transmission Date: 20130627
  Serious: No
  Sender: FDA-Public Use
  Company Number: US-AMGEN-USASP2012038393

PATIENT
  Age: 83 Year
  Sex: Female
  Weight: 72.8 kg

DRUGS (1)
  1. PROLIA [Suspect]
     Indication: PRODUCT USED FOR UNKNOWN INDICATION
     Dosage: 60 mg, UNK
     Route: 058
     Dates: start: 20120511

REACTIONS (2)
  - Soft tissue infection [Recovering/Resolving]
  - Skin infection [Recovering/Resolving]
